FAERS Safety Report 20297242 (Version 1)
Quarter: 2022Q1

REPORT INFORMATION
  Report Type: Spontaneous
  Country: US (occurrence: US)
  Receive Date: 20220105
  Receipt Date: 20220105
  Transmission Date: 20220423
  Serious: Yes (Other)
  Sender: FDA-Public Use
  Company Number: US-JNJFOC-20211259160

PATIENT
  Age: 8 Decade
  Sex: Female
  Weight: 59.020 kg

DRUGS (4)
  1. SIMPONI [Suspect]
     Active Substance: GOLIMUMAB
     Indication: Rheumatoid arthritis
     Route: 058
  2. LAMIFIN [Concomitant]
  3. FISH OIL\OMEGA-3 FATTY ACIDS [Concomitant]
     Active Substance: FISH OIL\OMEGA-3 FATTY ACIDS
     Indication: Antiinflammatory therapy
  4. UNSPECIFIED INGREDIENT [Concomitant]
     Active Substance: UNSPECIFIED INGREDIENT
     Indication: Bone disorder

REACTIONS (4)
  - Cardiac failure [Unknown]
  - Spinal decompression [Unknown]
  - Raynaud^s phenomenon [Unknown]
  - Lung disorder [Unknown]

NARRATIVE: CASE EVENT DATE: 20200101
